FAERS Safety Report 15917694 (Version 2)
Quarter: 2019Q2

REPORT INFORMATION
  Report Type: Spontaneous
  Country: US (occurrence: US)
  Receive Date: 20190205
  Receipt Date: 20190429
  Transmission Date: 20190711
  Serious: Yes (Other)
  Sender: FDA-Public Use
  Company Number: US-SA-2019SA026703

PATIENT
  Age: 63 Year
  Sex: Male
  Weight: 237 kg

DRUGS (3)
  1. VICTOZA [Concomitant]
     Active Substance: LIRAGLUTIDE
     Dosage: UNK
     Route: 065
     Dates: start: 20180227, end: 20180306
  2. SOLIQUA 100/33 [Suspect]
     Active Substance: INSULIN GLARGINE\LIXISENATIDE
     Dosage: 70 U, QD
  3. SOLIQUA 100/33 [Suspect]
     Active Substance: INSULIN GLARGINE\LIXISENATIDE
     Indication: DIABETES MELLITUS
     Dosage: UNK
     Route: 065
     Dates: start: 20171228, end: 201802

REACTIONS (5)
  - Abdominal pain [Unknown]
  - Nausea [Recovered/Resolved]
  - Pancreatitis [Recovered/Resolved]
  - Blood glucose increased [Unknown]
  - Lipase increased [Recovered/Resolved]

NARRATIVE: CASE EVENT DATE: 20180803
